FAERS Safety Report 15604202 (Version 1)
Quarter: 2018Q4

REPORT INFORMATION
  Report Type: Spontaneous
  Country: IN (occurrence: IN)
  Receive Date: 20181110
  Receipt Date: 20181110
  Transmission Date: 20190205
  Serious: Yes (Hospitalization, Other)
  Sender: FDA-Public Use
  Company Number: IN-ACCORD-091097

PATIENT
  Age: 60 Year
  Sex: Male

DRUGS (3)
  1. MYCOPHENOLIC ACID. [Suspect]
     Active Substance: MYCOPHENOLIC ACID
     Indication: IMMUNOSUPPRESSANT DRUG THERAPY
     Dosage: 750 MG IN THE MORNING, 500 MG AT NIGHT
  2. PREDNISOLONE. [Concomitant]
     Active Substance: PREDNISOLONE
     Indication: IMMUNOSUPPRESSANT DRUG THERAPY
  3. TACROLIMUS. [Suspect]
     Active Substance: TACROLIMUS
     Indication: IMMUNOSUPPRESSANT DRUG THERAPY

REACTIONS (3)
  - Parvovirus B19 test positive [Recovering/Resolving]
  - Aplasia pure red cell [Recovering/Resolving]
  - Cytomegalovirus infection [Recovering/Resolving]
